FAERS Safety Report 26011091 (Version 1)
Quarter: 2025Q4

REPORT INFORMATION
  Report Type: Spontaneous
  Country: US (occurrence: None)
  Receive Date: 20251107
  Receipt Date: 20251107
  Transmission Date: 20260118
  Serious: Yes (Hospitalization)
  Sender: FDA-CTU
  Company Number: None

PATIENT
  Age: 42 Year
  Sex: Female
  Weight: 72.1 kg

DRUGS (2)
  1. PONATINIB [Suspect]
     Active Substance: PONATINIB
     Dates: end: 20251008
  2. PREDNISONE [Concomitant]
     Active Substance: PREDNISONE
     Dates: end: 20251008

REACTIONS (2)
  - Febrile neutropenia [None]
  - Viral upper respiratory tract infection [None]

NARRATIVE: CASE EVENT DATE: 20251009
